FAERS Safety Report 8049792-3 (Version None)
Quarter: 2012Q1

REPORT INFORMATION
  Report Type: 
  Country: None (occurrence: None)
  Receive Date: 20120117
  Receipt Date: 20120112
  Transmission Date: 20120608
  Serious: Yes (Death)
  Sender: FDA-Public Use
  Company Number: FR-ROXANE LABORATORIES, INC.-2012-RO-00474RO

PATIENT

DRUGS (3)
  1. CISPLATIN [Suspect]
     Indication: OSTEOSARCOMA METASTATIC
  2. METHOTREXATE [Suspect]
     Indication: OSTEOSARCOMA METASTATIC
  3. VINCRISTINE [Suspect]
     Indication: OSTEOSARCOMA METASTATIC

REACTIONS (1)
  - OSTEOSARCOMA METASTATIC [None]
